FAERS Safety Report 8557337-4 (Version None)
Quarter: 2012Q3

REPORT INFORMATION
  Report Type: 
  Country: None (occurrence: None)
  Receive Date: 20120726
  Receipt Date: 20120726
  Transmission Date: 20120928
  Serious: Yes (Death)
  Sender: FDA-Public Use
  Company Number: None

PATIENT
  Sex: Male
  Weight: 60.95 kg

DRUGS (1)
  1. LINEZOLID [Suspect]
     Indication: LOCALISED INFECTION
     Dosage: LINEZOLID 600MG Q12H IV
     Route: 042
     Dates: start: 20120425, end: 20120501

REACTIONS (2)
  - BLOOD BILIRUBIN INCREASED [None]
  - HEPATIC ENZYME INCREASED [None]
